FAERS Safety Report 21931465 (Version 4)
Quarter: 2023Q2

REPORT INFORMATION
  Report Type: Report from Study
  Country: US (occurrence: US)
  Receive Date: 20230131
  Receipt Date: 20230503
  Transmission Date: 20230721
  Serious: Yes (Hospitalization, Other)
  Sender: FDA-Public Use
  Company Number: US-002147023-NVSC2023US017931

PATIENT
  Sex: Female

DRUGS (1)
  1. ENTRESTO [Suspect]
     Active Substance: SACUBITRIL\VALSARTAN
     Indication: Cardiac failure chronic
     Dosage: 1 DOSAGE FORM, BID (24/26 MG)
     Route: 065

REACTIONS (6)
  - Viral infection [Unknown]
  - Kidney infection [Unknown]
  - Arrhythmia [Unknown]
  - Heart valve incompetence [Unknown]
  - Fluid retention [Unknown]
  - Dyspnoea [Recovering/Resolving]
